FAERS Safety Report 11212120 (Version 1)
Quarter: 2015Q2

REPORT INFORMATION
  Report Type: Spontaneous
  Country: RU (occurrence: RU)
  Receive Date: 20150623
  Receipt Date: 20150623
  Transmission Date: 20150821
  Serious: Yes (Death, Other)
  Sender: FDA-Public Use
  Company Number: PHHY2015RU073384

PATIENT
  Age: 71 Year
  Sex: Female

DRUGS (4)
  1. METHIMAZOLE. [Suspect]
     Active Substance: METHIMAZOLE
     Dosage: 50 MG, QD
     Route: 065
  2. DIGOXIN. [Suspect]
     Active Substance: DIGOXIN
     Indication: PRODUCT USED FOR UNKNOWN INDICATION
     Route: 042
  3. METHIMAZOLE. [Suspect]
     Active Substance: METHIMAZOLE
     Indication: GOITRE
     Dosage: 30 MG, QD
     Route: 065
  4. PROPRANOLOL [Suspect]
     Active Substance: PROPRANOLOL\PROPRANOLOL HYDROCHLORIDE
     Indication: TACHYCARDIA
     Dosage: 40 MG, UNK
     Route: 065

REACTIONS (2)
  - Cardiogenic shock [Fatal]
  - Circulatory collapse [Unknown]
